FAERS Safety Report 4712358-4 (Version None)
Quarter: 2005Q3

REPORT INFORMATION
  Report Type: 
  Country: None (occurrence: None)
  Receive Date: 20050711
  Receipt Date: 20050531
  Transmission Date: 20060218
  Serious: No
  Sender: FDA-Public Use
  Company Number: 2005-06-0014

PATIENT
  Age: 6 Year
  Sex: Male
  Weight: 18 kg

DRUGS (1)
  1. AERIUS (DESLORATADINE) SYRUP [Suspect]
     Dosage: 1/2 SPOON
     Dates: start: 20050323, end: 20050414

REACTIONS (2)
  - CHEST PAIN [None]
  - TACHYCARDIA [None]
